FAERS Safety Report 9152920 (Version 1)
Quarter: 2013Q1

REPORT INFORMATION
  Report Type: Spontaneous
  Country: US (occurrence: US)
  Receive Date: 20130308
  Receipt Date: 20130308
  Transmission Date: 20140127
  Serious: Yes (Other)
  Sender: FDA-Public Use
  Company Number: US-RB-050753-13

PATIENT
  Age: 37 Year
  Sex: Female

DRUGS (3)
  1. SUBOXONE FILM [Suspect]
     Indication: DRUG DEPENDENCE
     Dosage: SUBOXONE FILM
     Route: 060
     Dates: start: 201211
  2. CELEXA [Concomitant]
     Indication: DEPRESSION
     Dosage: DOSAGE DETAILS UNKNOWN
     Route: 048
  3. XANAX [Concomitant]
     Indication: ANXIETY
     Dosage: DOSAGE DETAILS UNKNOWN, TAKEN DAILY AS NEEDED
     Route: 048

REACTIONS (2)
  - Local swelling [Not Recovered/Not Resolved]
  - Pneumonia [Recovered/Resolved]
